FAERS Safety Report 8127724-7 (Version None)
Quarter: 2012Q1

REPORT INFORMATION
  Report Type: 
  Country: None (occurrence: None)
  Receive Date: 20120210
  Receipt Date: 20120209
  Transmission Date: 20120608
  Serious: No
  Sender: FDA-Public Use
  Company Number: JP-PFIZER INC-2012031361

PATIENT
  Age: 51 Year
  Sex: Female

DRUGS (1)
  1. CABERGOLINE [Suspect]
     Indication: ACROMEGALY
     Dosage: 0.25 MG, ALTERNATE DAY
     Route: 048

REACTIONS (1)
  - DRUG EFFECT DECREASED [None]
